FAERS Safety Report 13879567 (Version 1)
Quarter: 2017Q3

REPORT INFORMATION
  Report Type: Other
  Country: ES (occurrence: ES)
  Receive Date: 20170817
  Receipt Date: 20170817
  Transmission Date: 20171127
  Serious: Yes (Hospitalization)
  Sender: FDA-Public Use
  Company Number: ES--2017-ES-000006

PATIENT
  Age: 27 Year
  Sex: Female

DRUGS (4)
  1. LOPERAMIDE [Suspect]
     Active Substance: LOPERAMIDE
     Indication: SUICIDE ATTEMPT
     Dosage: 20 MG
  2. SPIRONOLACTONE. [Suspect]
     Active Substance: SPIRONOLACTONE
     Indication: SUICIDE ATTEMPT
     Dosage: 625 MG
  3. LOSARTAN POTASSIUM BRAND UNSPECIFIED (VIVIMED) [Suspect]
     Active Substance: LOSARTAN POTASSIUM
     Indication: SUICIDE ATTEMPT
     Dosage: 350 MG
  4. IVABRADINE [Suspect]
     Active Substance: IVABRADINE
     Indication: SUICIDE ATTEMPT
     Dosage: 235 MG

REACTIONS (2)
  - Bradycardia [Recovered/Resolved]
  - Suicide attempt [None]
